FAERS Safety Report 12551511 (Version 2)
Quarter: 2016Q3

REPORT INFORMATION
  Report Type: Report from Study
  Country: IT (occurrence: IT)
  Receive Date: 20160713
  Receipt Date: 20160727
  Transmission Date: 20161109
  Serious: Yes (Hospitalization)
  Sender: FDA-Public Use
  Company Number: IT-ACCORD-042298

PATIENT
  Age: 57 Year
  Sex: Male

DRUGS (7)
  1. DELTACORTENE [Concomitant]
     Active Substance: PREDNISONE
     Dosage: STRENGTH: 25 MG
  2. CARDIOASPIRIN [Concomitant]
     Active Substance: ASPIRIN
  3. DILATREND [Concomitant]
     Active Substance: CARVEDILOL
  4. NYSTATIN. [Concomitant]
     Active Substance: NYSTATIN
  5. CISPLATIN. [Suspect]
     Active Substance: CISPLATIN
     Indication: RICHTER^S SYNDROME
     Route: 042
     Dates: start: 20160419, end: 20160420
  6. CYTARABINE/CYTARABINE HYDROCHLORIDE/CYTARABINE OCFOSFATE [Suspect]
     Active Substance: CYTARABINE
     Indication: RICHTER^S SYNDROME
     Route: 042
     Dates: start: 20160420, end: 20160420
  7. CORLENTOR [Concomitant]
     Active Substance: IVABRADINE HYDROCHLORIDE

REACTIONS (4)
  - Acute kidney injury [Unknown]
  - Metabolic acidosis [Unknown]
  - Off label use [Unknown]
  - Malaise [Unknown]

NARRATIVE: CASE EVENT DATE: 20160430
